FAERS Safety Report 6939164-4 (Version None)
Quarter: 2010Q3

REPORT INFORMATION
  Report Type: 
  Country: None (occurrence: None)
  Receive Date: 20100824
  Receipt Date: 20100819
  Transmission Date: 20110219
  Serious: Yes (Other)
  Sender: FDA-Public Use
  Company Number: GB-BRISTOL-MYERS SQUIBB COMPANY-14796148

PATIENT
  Age: 74 Year
  Sex: Female

DRUGS (3)
  1. ASPIRIN [Suspect]
     Indication: CEREBROVASCULAR ACCIDENT PROPHYLAXIS
  2. BENDROFLUMETHIAZIDE [Suspect]
     Indication: HYPERTENSION
  3. LEVOTHYROXINE SODIUM [Suspect]
     Indication: HYPOTHYROIDISM

REACTIONS (1)
  - PEMPHIGOID [None]
